FAERS Safety Report 8615828-1 (Version None)
Quarter: 2012Q3

REPORT INFORMATION
  Report Type: 
  Country: None (occurrence: None)
  Receive Date: 20120823
  Receipt Date: 20120821
  Transmission Date: 20120928
  Serious: Yes (Hospitalization, Other)
  Sender: FDA-Public Use
  Company Number: PHHO2010US14355

PATIENT
  Sex: Female
  Weight: 50.6 kg

DRUGS (7)
  1. MYCOPHENOLATE MEFETIL [Suspect]
     Dosage: UNK MG, BID
     Route: 048
     Dates: start: 20110609
  2. BACTRIM [Suspect]
     Indication: PROPHYLAXIS
  3. LOSARTAN POTASSIUM [Concomitant]
     Indication: HYPERTENSION
  4. LASIX [Concomitant]
     Indication: OEDEMA
  5. MYCOPHENOLATE MEFETIL [Suspect]
     Indication: RENAL TRANSPLANT
     Dosage: 1000 MG, BID
     Route: 048
     Dates: start: 20100824, end: 20110604
  6. PREDNISONE TAB [Suspect]
     Indication: RENAL TRANSPLANT
     Dosage: 5 MG, QD
     Route: 048
     Dates: start: 20101023
  7. PROGRAF [Suspect]
     Indication: RENAL TRANSPLANT
     Dosage: 2 MG, BID
     Route: 048
     Dates: start: 20110524, end: 20110604

REACTIONS (9)
  - CYTOMEGALOVIRUS VIRAEMIA [None]
  - SINUSITIS [None]
  - RHINORRHOEA [None]
  - URINARY TRACT INFECTION [None]
  - UROSEPSIS [None]
  - RENAL FAILURE [None]
  - DIARRHOEA [None]
  - NEUTROPENIA [None]
  - PYREXIA [None]
